FAERS Safety Report 14557022 (Version 2)
Quarter: 2018Q2

REPORT INFORMATION
  Report Type: Spontaneous
  Country: US (occurrence: US)
  Receive Date: 20180221
  Receipt Date: 20180406
  Transmission Date: 20180711
  Serious: No
  Sender: FDA-Public Use
  Company Number: US-ASTRAZENECA-2018SE14906

PATIENT
  Sex: Female

DRUGS (1)
  1. TUDORZA PRESSAIR [Suspect]
     Active Substance: ACLIDINIUM BROMIDE
     Indication: SARCOIDOSIS
     Route: 055

REACTIONS (4)
  - Influenza like illness [Unknown]
  - Device failure [Unknown]
  - Off label use [Unknown]
  - Product use in unapproved indication [Unknown]
